FAERS Safety Report 7509217-0 (Version None)
Quarter: 2011Q2

REPORT INFORMATION
  Report Type: 
  Country: None (occurrence: None)
  Receive Date: 20110517
  Receipt Date: 20110510
  Transmission Date: 20111010
  Serious: Yes (Hospitalization, Disabling)
  Sender: FDA-Public Use
  Company Number: 2010EU004295

PATIENT
  Age: 50 Year
  Sex: Female
  Weight: 86.5 kg

DRUGS (8)
  1. HYDROCORTISONE [Concomitant]
  2. SECTRAL [Concomitant]
  3. CELLCEPT [Concomitant]
  4. ZYLORIC (ALLOPURINOL SODIUM) [Concomitant]
  5. LYRICA [Concomitant]
  6. PROGRAF [Suspect]
     Indication: PROPHYLAXIS AGAINST TRANSPLANT REJECTION
     Dosage: 6 MG, UNKNOWN/D, ORAL
     Route: 048
     Dates: start: 20091009, end: 20100721
  7. INEXIUM (ESOMEPRAZOLE SODIUM) [Concomitant]
  8. ATORVASTATIN CALCIUM [Concomitant]

REACTIONS (4)
  - VISUAL ACUITY REDUCED [None]
  - PAPILLOEDEMA [None]
  - SCOTOMA [None]
  - TOXIC OPTIC NEUROPATHY [None]
